FAERS Safety Report 7502827-6 (Version None)
Quarter: 2011Q2

REPORT INFORMATION
  Report Type: 
  Country: None (occurrence: None)
  Receive Date: 20110525
  Receipt Date: 20110518
  Transmission Date: 20111010
  Serious: Yes (Hospitalization)
  Sender: FDA-Public Use
  Company Number: US-SHIONOGI, INC-2011000075

PATIENT
  Sex: Male
  Weight: 63.946 kg

DRUGS (3)
  1. VYVANSE [Concomitant]
  2. KAPVAY [Suspect]
     Indication: ATTENTION DEFICIT/HYPERACTIVITY DISORDER
     Dosage: 0.1 MG, EVERY NIGHT
     Route: 048
     Dates: start: 20110412, end: 20110512
  3. RISPERDAL [Concomitant]

REACTIONS (1)
  - SUBSTANCE ABUSE [None]
